FAERS Safety Report 9697917 (Version 1)
Quarter: 2013Q4

REPORT INFORMATION
  Report Type: Report from Study
  Country: JP (occurrence: JP)
  Receive Date: 20131120
  Receipt Date: 20131120
  Transmission Date: 20140711
  Serious: Yes (Other)
  Sender: FDA-Public Use
  Company Number: JP-SA-2013SA116572

PATIENT
  Age: 65 Year
  Sex: Female
  Weight: 65 kg

DRUGS (16)
  1. ELPLAT [Suspect]
     Indication: COLON CANCER
     Route: 041
  2. ELPLAT [Suspect]
     Indication: COLON CANCER
     Route: 041
  3. ELPLAT [Suspect]
     Indication: COLON CANCER
     Route: 041
  4. ELPLAT [Suspect]
     Indication: COLON CANCER
     Route: 041
     Dates: start: 20131003, end: 20131003
  5. CALCIUM LEVOFOLINATE [Suspect]
     Indication: COLON CANCER
     Route: 041
  6. CALCIUM LEVOFOLINATE [Suspect]
     Indication: COLON CANCER
     Route: 041
  7. CALCIUM LEVOFOLINATE [Suspect]
     Indication: COLON CANCER
     Route: 041
  8. CALCIUM LEVOFOLINATE [Suspect]
     Indication: COLON CANCER
     Route: 041
     Dates: start: 20131003, end: 20131003
  9. 5-FU [Concomitant]
     Indication: COLON CANCER
  10. AVASTIN [Concomitant]
     Indication: COLON CANCER
  11. GRANISETRON [Concomitant]
     Dates: end: 20131003
  12. DEXART [Concomitant]
     Dates: end: 20131003
  13. MAGNESIUM SULFATE [Concomitant]
  14. CALCICOL [Concomitant]
  15. GAMOFA [Concomitant]
  16. IRINOTECAN HYDROCHLORIDE [Concomitant]
     Indication: COLON CANCER

REACTIONS (1)
  - Shock [Recovered/Resolved]
